FAERS Safety Report 6512145-0 (Version None)
Quarter: 2009Q4

REPORT INFORMATION
  Report Type: 
  Country: None (occurrence: None)
  Receive Date: 20091222
  Receipt Date: 20090610
  Transmission Date: 20100525
  Serious: No
  Sender: FDA-Public Use
  Company Number: US-ASTRAZENECA-2009UW14866

PATIENT
  Age: 30987 Day
  Sex: Female
  Weight: 86.2 kg

DRUGS (7)
  1. CRESTOR [Suspect]
     Route: 048
     Dates: start: 20090607
  2. SYNTHROID [Concomitant]
  3. HYZAAR [Concomitant]
  4. LIPMAX [Concomitant]
  5. TYLENOL (CAPLET) [Concomitant]
  6. MULTI-VITAMIN [Concomitant]
  7. VITAMIN D [Concomitant]

REACTIONS (1)
  - DYSPNOEA [None]
